FAERS Safety Report 8854499 (Version 1)
Quarter: 2012Q4

REPORT INFORMATION
  Report Type: 
  Country: US (occurrence: US)
  Receive Date: 20121023
  Receipt Date: 20121023
  Transmission Date: 20130627
  Serious: Yes (Hospitalization, Other)
  Sender: FDA-Public Use
  Company Number: US-PFIZER INC-HQWYE394022JUL05

PATIENT
  Age: 51 Year
  Sex: Female
  Weight: 50 kg

DRUGS (17)
  1. PREMPRO [Suspect]
     Indication: HORMONE REPLACEMENT THERAPY
     Dosage: UNK
     Route: 048
     Dates: start: 19940718, end: 200202
  2. PREMARIN [Suspect]
     Indication: HORMONE REPLACEMENT THERAPY
     Dosage: 0.625 mg, UNK
     Route: 048
     Dates: start: 199407, end: 199609
  3. PROVERA [Suspect]
     Indication: HORMONE REPLACEMENT THERAPY
     Dosage: 5 mg, UNK
     Route: 048
     Dates: start: 199407, end: 199712
  4. PROVERA [Suspect]
     Dosage: 2.5 mg, UNK
     Route: 048
     Dates: start: 199604, end: 199709
  5. MEDROXYPROGESTERONE ACETATE [Suspect]
     Indication: HORMONE REPLACEMENT THERAPY
     Dosage: 5 mg, UNK
     Route: 048
     Dates: start: 199407, end: 199712
  6. MEDROXYPROGESTERONE ACETATE [Suspect]
     Dosage: 2.5 mg, UNK
     Route: 048
     Dates: start: 199604, end: 199709
  7. ESTRADIOL [Suspect]
     Indication: HORMONE REPLACEMENT THERAPY
     Dosage: 1 mg, UNK
     Route: 048
     Dates: start: 199801, end: 200201
  8. ESTRACE [Suspect]
     Indication: HORMONE REPLACEMENT THERAPY
     Dosage: 1 mg, UNK
     Route: 048
     Dates: start: 199604, end: 199712
  9. MEDROXYPROGESTERONE ACETATE [Suspect]
     Indication: HORMONE REPLACEMENT THERAPY
     Dosage: 5 mg, UNK
     Route: 048
     Dates: start: 199801, end: 200211
  10. PAXIL [Concomitant]
     Indication: DEPRESSION
     Dosage: UNK
     Dates: start: 199801
  11. PAXIL [Concomitant]
     Indication: ANXIETY
  12. WELLBUTRIN [Concomitant]
     Indication: DEPRESSION
     Dosage: UNK
     Dates: start: 199801
  13. WELLBUTRIN [Concomitant]
     Indication: ANXIETY
  14. LEXAPRO [Concomitant]
     Indication: DEPRESSION
     Dosage: UNK
     Dates: start: 199801
  15. LEXAPRO [Concomitant]
     Indication: ANXIETY
  16. CELEXA [Concomitant]
     Indication: DEPRESSION
     Dosage: UNK
     Dates: start: 199801
  17. CELEXA [Concomitant]
     Indication: ANXIETY

REACTIONS (1)
  - Breast cancer female [Unknown]
